FAERS Safety Report 16664984 (Version 1)
Quarter: 2019Q3

REPORT INFORMATION
  Report Type: Spontaneous
  Country: US (occurrence: US)
  Receive Date: 20190803
  Receipt Date: 20190803
  Transmission Date: 20191004
  Serious: No
  Sender: FDA-Public Use
  Company Number: US-JNJFOC-20190741320

PATIENT
  Age: 11 Month
  Sex: Male
  Weight: 11.35 kg

DRUGS (1)
  1. INFANTS TYLENOL [Suspect]
     Active Substance: ACETAMINOPHEN
     Indication: ACCIDENTAL EXPOSURE TO PRODUCT
     Dosage: PATIENT RECEIVED TWO 3.75 ML DOSES CLOSE TOGETHER ABOUT AN HOUR AGO
     Route: 065
     Dates: start: 20190727

REACTIONS (1)
  - Extra dose administered [Unknown]

NARRATIVE: CASE EVENT DATE: 20190727
